FAERS Safety Report 6545097-8 (Version None)
Quarter: 2010Q1

REPORT INFORMATION
  Report Type: 
  Country: None (occurrence: None)
  Receive Date: 20100121
  Receipt Date: 20100118
  Transmission Date: 20100710
  Serious: Yes (Other)
  Sender: FDA-Public Use
  Company Number: US-JNJFOC-20100104135

PATIENT
  Sex: Male
  Weight: 84.37 kg

DRUGS (6)
  1. LEVAQUIN [Suspect]
     Indication: PNEUMONIA
     Route: 048
  2. LEVAQUIN [Suspect]
     Route: 048
  3. DIGOXIN [Concomitant]
     Indication: CARDIAC DISORDER
     Route: 048
  4. OMEPRAZOLE [Concomitant]
     Indication: ANTACID THERAPY
     Route: 048
  5. TERAZOSIN HCL [Concomitant]
     Indication: DYSURIA
     Route: 048
  6. FINASTERIDE [Concomitant]
     Indication: PROSTATIC DISORDER
     Route: 048

REACTIONS (3)
  - DRUG INEFFECTIVE [None]
  - TENDON RUPTURE [None]
  - WEIGHT INCREASED [None]
